FAERS Safety Report 13705588 (Version 2)
Quarter: 2017Q3

REPORT INFORMATION
  Report Type: Spontaneous
  Country: TR (occurrence: TR)
  Receive Date: 20170630
  Receipt Date: 20170706
  Transmission Date: 20171127
  Serious: Yes (Hospitalization)
  Sender: FDA-Public Use
  Company Number: TR-TEVA-781276ROM

PATIENT
  Age: 26 Year
  Sex: Female

DRUGS (8)
  1. PREDNISOLONE. [Suspect]
     Active Substance: PREDNISOLONE
     Indication: SARCOIDOSIS
     Dosage: STARTED AT A HIGH DOSE AND THEN TAPERED
     Route: 048
  2. TRIAMCINOLONE [Suspect]
     Active Substance: TRIAMCINOLONE
     Indication: SARCOIDOSIS
     Route: 047
  3. DOXYCYCLINE. [Concomitant]
     Active Substance: DOXYCYCLINE
     Indication: BRUCELLOSIS
     Dosage: 200 MILLIGRAM DAILY;
     Route: 048
  4. RIFAMPICIN [Suspect]
     Active Substance: RIFAMPIN
     Indication: BRUCELLOSIS
     Dosage: 600 MILLIGRAM DAILY;
     Route: 065
  5. PREDNISOLONE ACETATE. [Concomitant]
     Active Substance: PREDNISOLONE ACETATE
     Indication: BRUCELLOSIS
     Dosage: HOURLY
     Route: 065
  6. CEFTRIAXONE. [Concomitant]
     Active Substance: CEFTRIAXONE
     Indication: BRUCELLOSIS
     Dosage: 2 GRAM DAILY;
     Route: 042
  7. AZATHIOPRINE. [Suspect]
     Active Substance: AZATHIOPRINE
     Indication: SARCOIDOSIS
     Dosage: 150 MILLIGRAM DAILY; INITIAL DOSAGE WAS UNKNOWN; HOWEVER RECEIVING 150MG/DAY
     Route: 065
  8. PREDNISOLONE. [Suspect]
     Active Substance: PREDNISOLONE
     Dosage: AGAIN INCREASED; THEN CONTINUING TREATMENT AT 8MG/DAY
     Route: 048

REACTIONS (5)
  - Cushingoid [Unknown]
  - Retinal detachment [Unknown]
  - Endophthalmitis [Recovered/Resolved]
  - Osteonecrosis [Unknown]
  - Nausea [Unknown]
